FAERS Safety Report 19983843 (Version 1)
Quarter: 2021Q4

REPORT INFORMATION
  Report Type: Spontaneous
  Country: LI (occurrence: LI)
  Receive Date: 20211021
  Receipt Date: 20211021
  Transmission Date: 20220303
  Serious: Yes (Other)
  Sender: FDA-Public Use
  Company Number: LI-ASTELLAS-2021US035561

PATIENT
  Sex: Male

DRUGS (1)
  1. FLOMAX [Suspect]
     Active Substance: TAMSULOSIN HYDROCHLORIDE
     Indication: Product used for unknown indication
     Dosage: UNK UNK, UNKNOWN FREQ. (TREATMENT DURING 6 WEEKS, TREATMENT DURATION APPROXIMATELY 6 MONTHS)
     Route: 065
     Dates: start: 201501, end: 201505

REACTIONS (3)
  - Retrograde ejaculation [Not Recovered/Not Resolved]
  - Infertility male [Not Recovered/Not Resolved]
  - Drug ineffective [Not Recovered/Not Resolved]
